FAERS Safety Report 5549363-4 (Version None)
Quarter: 2007Q4

REPORT INFORMATION
  Report Type: 
  Country: None (occurrence: None)
  Receive Date: 20071128
  Receipt Date: 20071029
  Transmission Date: 20080405
  Serious: Yes (Other)
  Sender: FDA-Public Use
  Company Number: 2007091338

PATIENT
  Sex: Male

DRUGS (3)
  1. EXUBERA [Suspect]
     Indication: TYPE 1 DIABETES MELLITUS
     Dosage: (3 MG)
     Dates: start: 20071001
  2. HUMALOG [Concomitant]
  3. ACETYLSALICYLIC ACID SRT [Concomitant]

REACTIONS (2)
  - BLOOD GLUCOSE INCREASED [None]
  - DRUG INEFFECTIVE [None]
